FAERS Safety Report 19627072 (Version 2)
Quarter: 2022Q2

REPORT INFORMATION
  Report Type: Other
  Country: CA (occurrence: None)
  Receive Date: 20210728
  Receipt Date: 20220510
  Transmission Date: 20220721
  Serious: Yes (Hospitalization)
  Sender: FDA-Public Use
  Company Number: CA-ROCHE-2878119

PATIENT
  Age: 77 Year
  Sex: Female

DRUGS (12)
  1. RITUXAN [Suspect]
     Active Substance: RITUXIMAB
     Indication: Rheumatoid arthritis
     Dosage: DAY 1, 15, PREVIOUS RITUXAN TREATMENT WAS ON 29/JUN/2021.
     Route: 042
     Dates: start: 20171120, end: 20210629
  2. RITUXAN [Suspect]
     Active Substance: RITUXIMAB
     Indication: Serology positive
  3. ACETAMINOPHEN [Concomitant]
     Active Substance: ACETAMINOPHEN
     Indication: Premedication
     Route: 048
     Dates: start: 20171120
  4. ARAVA [Concomitant]
     Active Substance: LEFLUNOMIDE
  5. CANDESARTAN [Concomitant]
     Active Substance: CANDESARTAN
     Indication: Hypertension
  6. DIPHENHYDRAMINE [Concomitant]
     Active Substance: DIPHENHYDRAMINE
     Indication: Premedication
     Route: 048
     Dates: start: 20171120
  7. METFORMIN [Concomitant]
     Active Substance: METFORMIN HYDROCHLORIDE
     Indication: Diabetes mellitus
     Dates: start: 2019
  8. METHYLPREDNISOLONE [Concomitant]
     Active Substance: METHYLPREDNISOLONE
     Indication: Premedication
     Route: 042
     Dates: start: 20171120
  9. PLAQUENIL [Concomitant]
     Active Substance: HYDROXYCHLOROQUINE SULFATE
  10. PREDNISONE [Concomitant]
     Active Substance: PREDNISONE
  11. RISEDRONATE SODIUM [Concomitant]
     Active Substance: RISEDRONATE SODIUM
  12. CALCIUM [Concomitant]
     Active Substance: CALCIUM

REACTIONS (3)
  - Pneumonia [Unknown]
  - Dehydration [Unknown]
  - Spinal disorder [Unknown]

NARRATIVE: CASE EVENT DATE: 20210701
